FAERS Safety Report 6517888-0 (Version None)
Quarter: 2009Q4

REPORT INFORMATION
  Report Type: 
  Country: None (occurrence: None)
  Receive Date: 20091223
  Receipt Date: 20091223
  Transmission Date: 20100525
  Serious: Yes (Hospitalization)
  Sender: FDA-Public Use
  Company Number: None

PATIENT
  Age: 66 Year
  Sex: Male
  Weight: 78 kg

DRUGS (2)
  1. SITAGLIPTIN 100 MG [Suspect]
     Indication: DIABETES MELLITUS
     Dosage: 100 MG DAILY PO (DATES OF USE: UNKNOWN, BUT RECENT START)
     Route: 048
  2. SIMVASTATIN [Suspect]
     Indication: HYPERLIPIDAEMIA
     Dosage: 80 MG DAILY PO
     Route: 048

REACTIONS (7)
  - ASTHENIA [None]
  - BLOOD CREATINE PHOSPHOKINASE INCREASED [None]
  - BLOOD CREATININE INCREASED [None]
  - DECREASED APPETITE [None]
  - HEPATIC ENZYME INCREASED [None]
  - NAUSEA [None]
  - PAIN IN EXTREMITY [None]
